FAERS Safety Report 5253019-5 (Version None)
Quarter: 2007Q1

REPORT INFORMATION
  Report Type: 
  Country: None (occurrence: None)
  Receive Date: 20070227
  Receipt Date: 20070212
  Transmission Date: 20070707
  Serious: Yes (Life-Threatening, Hospitalization, Disabling, Other)
  Sender: FDA-Public Use
  Company Number: GXKR2007GB01659

PATIENT
  Age: 86 Year
  Sex: Male
  Weight: 63.8 kg

DRUGS (1)
  1. TRIMETHOPRIM [Suspect]
     Dosage: 200 MG, BID, ORAL
     Route: 048
     Dates: start: 20061212, end: 20061214

REACTIONS (4)
  - ERYTHEMA [None]
  - PAIN IN EXTREMITY [None]
  - RASH MACULAR [None]
  - SKIN EXFOLIATION [None]
